FAERS Safety Report 9671728 (Version 1)
Quarter: 2013Q4

REPORT INFORMATION
  Report Type: Spontaneous
  Country: US (occurrence: None)
  Receive Date: 20131105
  Receipt Date: 20131105
  Transmission Date: 20140711
  Serious: Yes (Other)
  Sender: FDA-Public Use
  Company Number: None

PATIENT
  Sex: 0

DRUGS (1)
  1. BEPREVE [Suspect]

REACTIONS (4)
  - Local swelling [None]
  - Arthritis [None]
  - Condition aggravated [None]
  - Local swelling [None]
